FAERS Safety Report 14553419 (Version 3)
Quarter: 2018Q1

REPORT INFORMATION
  Report Type: Spontaneous
  Country: US (occurrence: US)
  Receive Date: 20180220
  Receipt Date: 20180301
  Transmission Date: 20180509
  Serious: Yes (Hospitalization, Other)
  Sender: FDA-Public Use
  Company Number: US-BAYER-2018-029537

PATIENT
  Age: 33 Year
  Sex: Female

DRUGS (2)
  1. MIRENA [Suspect]
     Active Substance: LEVONORGESTREL
     Indication: CONTRACEPTION
     Dosage: 20 MCG/24HR, CONT
     Route: 015
  2. MIRENA [Suspect]
     Active Substance: LEVONORGESTREL
     Indication: CONTRACEPTION

REACTIONS (8)
  - Ovarian cyst [None]
  - Chills [None]
  - Presyncope [None]
  - Pyrexia [None]
  - Genital haemorrhage [None]
  - Abdominal pain upper [None]
  - Nasopharyngitis [None]
  - Ovarian abscess [None]

NARRATIVE: CASE EVENT DATE: 20171011
